FAERS Safety Report 25691073 (Version 1)
Quarter: 2025Q3

REPORT INFORMATION
  Report Type: Report from Study
  Country: US (occurrence: US)
  Receive Date: 20250818
  Receipt Date: 20250818
  Transmission Date: 20251021
  Serious: Yes (Other)
  Sender: ALEXION PHARMACEUTICALS
  Company Number: US-ASTRAZENECA-202508USA010568US

PATIENT
  Sex: Female

DRUGS (2)
  1. LYNPARZA [Suspect]
     Active Substance: OLAPARIB
     Indication: Fallopian tube cancer
     Dosage: 100 MICROGRAM, BID
     Dates: start: 202506
  2. LYNPARZA [Suspect]
     Active Substance: OLAPARIB
     Dosage: 150 MICROGRAM, BID
     Dates: start: 202506

REACTIONS (6)
  - Arthralgia [Unknown]
  - Dry skin [Unknown]
  - Neuropathy peripheral [Unknown]
  - Lung disorder [Unknown]
  - Dyspnoea [Unknown]
  - Anaemia [Unknown]
